FAERS Safety Report 9967266 (Version 2)
Quarter: 2014Q1

REPORT INFORMATION
  Report Type: Report from Study
  Country: US (occurrence: US)
  Receive Date: 20140305
  Receipt Date: 20140305
  Transmission Date: 20141002
  Serious: Yes (Hospitalization)
  Sender: FDA-Public Use
  Company Number: US-ABBVIE-13P-163-1097205-00

PATIENT
  Age: 50 Year
  Sex: Female
  Weight: 84.9 kg

DRUGS (2)
  1. HUMIRA [Suspect]
     Indication: RHEUMATOID ARTHRITIS
     Route: 058
     Dates: start: 200807
  2. HUMIRA [Suspect]
     Dosage: 3-4 INJECTIONS
     Route: 058

REACTIONS (3)
  - Arthritis [Recovered/Resolved]
  - Lung infection [Unknown]
  - Pain [Not Recovered/Not Resolved]
